FAERS Safety Report 12464034 (Version 1)
Quarter: 2016Q2

REPORT INFORMATION
  Report Type: Spontaneous
  Country: US (occurrence: None)
  Receive Date: 20160613
  Receipt Date: 20160613
  Transmission Date: 20160815
  Serious: No
  Sender: FDA-Public Use
  Company Number: None

PATIENT
  Age: 42 Year
  Sex: Female
  Weight: 72.58 kg

DRUGS (5)
  1. SYNTHROID [Concomitant]
     Active Substance: LEVOTHYROXINE SODIUM
  2. MOTRIN [Concomitant]
     Active Substance: IBUPROFEN
  3. NORTRIPTYLINE [Concomitant]
     Active Substance: NORTRIPTYLINE
  4. DULOXETINE. [Concomitant]
     Active Substance: DULOXETINE
  5. DULOXETINE, 30 MG CAPSULES [Suspect]
     Active Substance: DULOXETINE
     Indication: PAIN
     Dosage: 1 CAPSULE(S) IN THE MORNING TAKEN BY MOUTH
     Route: 048
     Dates: start: 20160301, end: 20160331

REACTIONS (5)
  - Hypertension [None]
  - Nausea [None]
  - Headache [None]
  - Weight increased [None]
  - Alopecia [None]

NARRATIVE: CASE EVENT DATE: 20160301
